FAERS Safety Report 9315220 (Version 5)
Quarter: 2014Q2

REPORT INFORMATION
  Report Type: Report from Study
  Country: UA (occurrence: UA)
  Receive Date: 20130529
  Receipt Date: 20140522
  Transmission Date: 20141212
  Serious: Yes (Hospitalization)
  Sender: FDA-Public Use
  Company Number: UA-JNJFOC-20130514144

PATIENT
  Age: 29 Year
  Sex: Male
  Weight: 90 kg

DRUGS (2)
  1. PALIPERIDONE PALMITATE [Suspect]
     Indication: SCHIZOPHRENIA, PARANOID TYPE
     Dosage: MEDICATION KIT NUMBER: 40590
     Route: 030
     Dates: start: 20130205, end: 20130508
  2. PALIPERIDONE PALMITATE [Suspect]
     Indication: SCHIZOPHRENIA, PARANOID TYPE
     Dosage: MEDICATION KIT NUMBER: 40590
     Route: 030

REACTIONS (1)
  - Schizophrenia [Recovered/Resolved]
